FAERS Safety Report 9057880 (Version 2)
Quarter: 2013Q1

REPORT INFORMATION
  Report Type: Spontaneous
  Country: JP (occurrence: JP)
  Receive Date: 20130210
  Receipt Date: 20130304
  Transmission Date: 20140127
  Serious: Yes (Death)
  Sender: FDA-Public Use
  Company Number: JP-AMGEN-JPNSP2013009245

PATIENT
  Age: 58 Year
  Sex: Male
  Weight: 97 kg

DRUGS (18)
  1. VECTIBIX [Suspect]
     Indication: COLON CANCER
     Dosage: 6 MG/KG, UNK
     Route: 041
     Dates: start: 20120718, end: 20121218
  2. IRINOTECAN HYDROCHLORIDE [Suspect]
     Indication: COLON CANCER
     Dosage: 120 MG/M2, Q2WK
     Route: 041
     Dates: start: 20120718, end: 20121218
  3. TAKEPRON [Concomitant]
     Dosage: OD TABLETS 15
     Route: 048
  4. AMLODIPINE                         /00972402/ [Concomitant]
     Dosage: UNK UNK, UNK
     Route: 048
  5. MEZOLMIN [Concomitant]
     Dosage: UNK UNK, UNK
     Route: 048
  6. OLMETEC [Concomitant]
     Dosage: UNK UNK, UNK
     Route: 048
  7. CADEMESIN [Concomitant]
     Dosage: UNK UNK, UNK
     Route: 048
  8. URINORM [Concomitant]
     Dosage: UNK UNK, UNK
     Route: 048
  9. CLARITH [Concomitant]
     Dosage: UNK UNK, UNK
     Route: 048
  10. ALESION [Concomitant]
     Dosage: UNK UNK, UNK
     Route: 048
  11. BIOFERMIN                          /00275501/ [Concomitant]
     Dosage: UNK UNK, UNK
     Route: 048
  12. VOLTAREN                           /00372302/ [Concomitant]
     Dosage: UNK UNK, UNK
     Route: 065
  13. GENINAX [Concomitant]
     Indication: PYREXIA
     Dosage: UNK UNK, AS NECESSARY
     Route: 048
  14. HIRUDOID                           /00723701/ [Concomitant]
     Dosage: UNK UNK, UNK
     Route: 062
  15. DIACORT [Concomitant]
     Dosage: UNK UNK, UNK
     Route: 062
  16. DALACIN T [Concomitant]
     Dosage: UNK UNK, UNK
     Route: 062
  17. POSTERISAN                         /00521801/ [Concomitant]
     Dosage: UNK
     Route: 062
  18. XYLOCAINE JELLY [Concomitant]
     Dosage: UNK
     Route: 050

REACTIONS (7)
  - Sudden death [Fatal]
  - Anal abscess [Not Recovered/Not Resolved]
  - Haemorrhoids [Not Recovered/Not Resolved]
  - Neutrophil count decreased [Recovered/Resolved]
  - Musculoskeletal stiffness [Not Recovered/Not Resolved]
  - Hypomagnesaemia [Not Recovered/Not Resolved]
  - Diarrhoea [Recovered/Resolved]
